FAERS Safety Report 9399789 (Version 1)
Quarter: 2013Q3

REPORT INFORMATION
  Report Type: Report from Study
  Country: US (occurrence: US)
  Receive Date: 20130715
  Receipt Date: 20130715
  Transmission Date: 20140515
  Serious: Yes (Death)
  Sender: FDA-Public Use
  Company Number: PHEH2013US014728

PATIENT
  Age: 70 Year
  Sex: Male

DRUGS (8)
  1. TASIGNA [Suspect]
     Dosage: 200 MG
  2. RAMIPRIL [Concomitant]
     Dosage: 5 MG
  3. FUROSEMIDE [Concomitant]
     Dosage: 40 MG
  4. SYNTHROID [Concomitant]
     Dosage: 112 UG
  5. LANTUS [Concomitant]
     Dosage: 100 ML
  6. SIMVASTATIN [Concomitant]
     Dosage: 10 MG
  7. GLYBURIDE [Concomitant]
     Dosage: 1.25 MG
  8. METOPROLOL [Concomitant]
     Dosage: 100 MG

REACTIONS (1)
  - Death [Fatal]
